FAERS Safety Report 24964870 (Version 1)
Quarter: 2025Q1

REPORT INFORMATION
  Report Type: Spontaneous
  Country: US (occurrence: None)
  Receive Date: 20250212
  Receipt Date: 20250212
  Transmission Date: 20250409
  Serious: Yes (Other)
  Sender: FDA-CTU
  Company Number: None

PATIENT
  Age: 84 Year
  Sex: Female

DRUGS (1)
  1. POMALYST [Suspect]
     Active Substance: POMALIDOMIDE
     Indication: Plasma cell myeloma
     Dosage: FREQUENCY : DAILY;?
     Route: 048
     Dates: start: 20231004, end: 20250130

REACTIONS (6)
  - Paraesthesia [None]
  - Hypoaesthesia [None]
  - Balance disorder [None]
  - Blood glucose abnormal [None]
  - Appetite disorder [None]
  - Therapy cessation [None]

NARRATIVE: CASE EVENT DATE: 20250130
